FAERS Safety Report 21842267 (Version 1)
Quarter: 2023Q1

REPORT INFORMATION
  Report Type: Spontaneous
  Country: US (occurrence: None)
  Receive Date: 20230109
  Receipt Date: 20230109
  Transmission Date: 20230418
  Serious: No
  Sender: FDA-Public Use
  Company Number: None

PATIENT
  Age: 70 Year
  Sex: Female
  Weight: 68.9 kg

DRUGS (13)
  1. IBRANCE [Suspect]
     Active Substance: PALBOCICLIB
     Indication: Breast cancer female
     Dosage: OTHER FREQUENCY : 21D ON 7D OFF;?
     Route: 048
     Dates: end: 20221226
  2. AMLIDIPINE [Concomitant]
  3. ANASTROZOLE [Concomitant]
  4. ASPIRIN [Concomitant]
  5. ATENOLOL [Concomitant]
     Active Substance: ATENOLOL
  6. CALCIUM 500 + D3 [Concomitant]
  7. FOSAMAX [Concomitant]
  8. LIPITOR [Concomitant]
  9. LISINOPRIL [Concomitant]
  10. LUTEIN [Concomitant]
  11. NITROSTAT [Concomitant]
  12. PRILOSEC OTC [Concomitant]
  13. ZOLEDRONIC ACID [Concomitant]

REACTIONS (2)
  - Haemoglobin decreased [None]
  - Therapy cessation [None]
